FAERS Safety Report 9893730 (Version 1)
Quarter: 2014Q1

REPORT INFORMATION
  Report Type: Spontaneous
  Country: US (occurrence: US)
  Receive Date: 20140213
  Receipt Date: 20140213
  Transmission Date: 20141002
  Serious: Yes (Death, Other)
  Sender: FDA-Public Use
  Company Number: US-PFIZER INC-2014040041

PATIENT
  Age: 31 Year
  Sex: Male

DRUGS (4)
  1. MORPHINE SULFATE [Suspect]
     Dosage: UNK
     Route: 065
  2. CODEINE [Suspect]
     Dosage: UNK
     Route: 065
  3. ALCOHOL [Suspect]
     Indication: SUBSTANCE ABUSE
     Dosage: UNK
     Route: 048
  4. HEROIN [Suspect]
     Indication: SUBSTANCE ABUSE
     Dosage: UNK
     Route: 065

REACTIONS (2)
  - Toxicity to various agents [Fatal]
  - Substance abuse [Unknown]
